FAERS Safety Report 6621684-3 (Version None)
Quarter: 2010Q1

REPORT INFORMATION
  Report Type: 
  Country: None (occurrence: None)
  Receive Date: 20100223
  Receipt Date: 20100106
  Transmission Date: 20100710
  Serious: Yes (Other)
  Sender: FDA-Public Use
  Company Number: 004049

PATIENT
  Sex: Female
  Weight: 63.5 kg

DRUGS (2)
  1. CIMZIA [Suspect]
     Indication: CROHN'S DISEASE
     Dosage: (400 MG MONTHLY SUBCUTANEOUS)
     Route: 058
     Dates: start: 20090901
  2. INH [Suspect]
     Indication: TUBERCULOSIS TEST POSITIVE
     Dosage: (300 MG QD ORAL)
     Route: 048
     Dates: start: 20090501

REACTIONS (1)
  - RASH [None]
